FAERS Safety Report 14363727 (Version 1)
Quarter: 2018Q1

REPORT INFORMATION
  Report Type: Spontaneous
  Country: US (occurrence: US)
  Receive Date: 20180105
  Receipt Date: 20180105
  Transmission Date: 20180509
  Serious: Yes (Hospitalization)
  Sender: FDA-Public Use
  Company Number: None

PATIENT
  Age: 92 Year
  Sex: Male

DRUGS (1)
  1. CIPROFLOXACIN. [Suspect]
     Active Substance: CIPROFLOXACIN
     Indication: PROTEUS INFECTION
     Route: 048
     Dates: start: 20170930, end: 20171019

REACTIONS (2)
  - Clostridium difficile colitis [None]
  - Pyrexia [None]

NARRATIVE: CASE EVENT DATE: 20171019
